FAERS Safety Report 9710841 (Version 2)
Quarter: 2013Q4

REPORT INFORMATION
  Report Type: Spontaneous
  Country: US (occurrence: US)
  Receive Date: 20131126
  Receipt Date: 20131126
  Transmission Date: 20140711
  Serious: No
  Sender: FDA-Public Use
  Company Number: US-BRISTOL-MYERS SQUIBB COMPANY-19021500

PATIENT
  Age: 63 Year
  Sex: Female
  Weight: 74.83 kg

DRUGS (3)
  1. BYDUREON [Suspect]
     Indication: TYPE 2 DIABETES MELLITUS
     Route: 058
     Dates: start: 20121023, end: 20130428
  2. METFORMIN [Concomitant]
  3. GLIPIZIDE [Concomitant]

REACTIONS (5)
  - Injection site nodule [Unknown]
  - Weight increased [Unknown]
  - Product quality issue [Unknown]
  - Injection site haemorrhage [Unknown]
  - Drug ineffective [Unknown]
